FAERS Safety Report 16158093 (Version 1)
Quarter: 2019Q2

REPORT INFORMATION
  Report Type: Spontaneous
  Country: US (occurrence: US)
  Receive Date: 20190404
  Receipt Date: 20190404
  Transmission Date: 20190711
  Serious: Yes (Death, Hospitalization, Other)
  Sender: FDA-Public Use
  Company Number: US-ALVOGEN-2019-ALVOGEN-099052

PATIENT
  Age: 78 Year
  Sex: Male
  Weight: 68.04 kg

DRUGS (6)
  1. AMIODARONE [Suspect]
     Active Substance: AMIODARONE
     Indication: PRODUCT USED FOR UNKNOWN INDICATION
     Route: 048
  2. TICAGRELOR. [Suspect]
     Active Substance: TICAGRELOR
     Indication: MYOCARDIAL INFARCTION
     Route: 048
     Dates: start: 20190223, end: 201903
  3. LISINOPRIL. [Suspect]
     Active Substance: LISINOPRIL
     Indication: PRODUCT USED FOR UNKNOWN INDICATION
     Route: 048
     Dates: start: 20190223, end: 201903
  4. CALCIUM [Concomitant]
     Active Substance: CALCIUM
     Indication: OSTEOPETROSIS
     Route: 048
  5. ACETYLSALICYLIC ACID [Concomitant]
     Active Substance: ASPIRIN
     Indication: PRODUCT USED FOR UNKNOWN INDICATION
     Dosage: DAILY
     Route: 048
  6. ASCORBIC ACID/BIOTIN/FOLIC ACID/NICOTINIC ACID/PANTOTHENIC ACID/PYRIDOXINE HYDROCHLORIDE/RETINOL/RIB [Concomitant]
     Indication: VITAMIN SUPPLEMENTATION

REACTIONS (2)
  - Pneumonia [Fatal]
  - Haemoptysis [Not Recovered/Not Resolved]

NARRATIVE: CASE EVENT DATE: 201903
